FAERS Safety Report 24916685 (Version 1)
Quarter: 2025Q1

REPORT INFORMATION
  Report Type: Spontaneous
  Country: US (occurrence: US)
  Receive Date: 20250203
  Receipt Date: 20250203
  Transmission Date: 20250409
  Serious: No
  Sender: Fortrea
  Company Number: US-THERACOSBIO, LLC-THR-US-2024-000001

PATIENT

DRUGS (1)
  1. BRENZAVVY [Suspect]
     Active Substance: BEXAGLIFLOZIN
     Indication: Type 2 diabetes mellitus
     Dosage: HALF A TABLET, IN THE MORNING
     Route: 048
     Dates: start: 2024

REACTIONS (3)
  - Muscle spasms [Recovering/Resolving]
  - Diarrhoea [Recovering/Resolving]
  - Wrong technique in product usage process [Unknown]

NARRATIVE: CASE EVENT DATE: 20240101
